FAERS Safety Report 11848727 (Version 1)
Quarter: 2015Q4

REPORT INFORMATION
  Report Type: Other
  Country: US (occurrence: GB)
  Receive Date: 20151218
  Receipt Date: 20151218
  Transmission Date: 20160305
  Serious: Yes (Hospitalization)
  Sender: FDA-Public Use
  Company Number: US-SHIRE-GB201516380

PATIENT
  Age: 48 Year
  Sex: Female

DRUGS (2)
  1. CINRYZE [Suspect]
     Active Substance: HUMAN C1-ESTERASE INHIBITOR
     Indication: HEREDITARY ANGIOEDEMA
     Dosage: UNK, OTHER (TWICE WEEKLY)
     Route: 042
  2. CINRYZE [Suspect]
     Active Substance: HUMAN C1-ESTERASE INHIBITOR
     Indication: PROPHYLAXIS

REACTIONS (4)
  - Nasopharyngitis [Recovered/Resolved]
  - Poor venous access [Unknown]
  - Hereditary angioedema [Unknown]
  - Drug dose omission [Unknown]

NARRATIVE: CASE EVENT DATE: 201511
